FAERS Safety Report 20157041 (Version 13)
Quarter: 2025Q2

REPORT INFORMATION
  Report Type: Spontaneous
  Country: FR (occurrence: FR)
  Receive Date: 20211207
  Receipt Date: 20250614
  Transmission Date: 20250716
  Serious: Yes (Hospitalization)
  Sender: ROCHE
  Company Number: None

PATIENT
  Age: 55 Year
  Sex: Female
  Weight: 48.5 kg

DRUGS (11)
  1. TOCILIZUMAB [Suspect]
     Active Substance: TOCILIZUMAB
     Indication: Rheumatoid arthritis
     Route: 042
     Dates: start: 20210415, end: 202105
  2. TOCILIZUMAB [Suspect]
     Active Substance: TOCILIZUMAB
     Route: 065
     Dates: start: 202105
  3. ENBREL [Concomitant]
     Active Substance: ETANERCEPT
     Route: 042
  4. ENBREL [Concomitant]
     Active Substance: ETANERCEPT
     Route: 042
  5. ARAVA [Concomitant]
     Active Substance: LEFLUNOMIDE
  6. PANTOPRAZOLE [Concomitant]
     Active Substance: PANTOPRAZOLE
     Dosage: 1 TABLET IN THE MORNING, 30 MINUTES BEFORE FOOD
  7. PARAFFIN [Concomitant]
     Active Substance: PARAFFIN
     Dosage: ONE SINGLE-DOSE CONTAINER AT LUNCH AND IN THE EVENING
  8. SOLUPRED [Concomitant]
  9. EFFERALGAN [Concomitant]
     Active Substance: ACETAMINOPHEN
  10. LEVOTHYROXINE [Concomitant]
     Active Substance: LEVOTHYROXINE
  11. ARCOXIA [Concomitant]
     Active Substance: ETORICOXIB

REACTIONS (25)
  - Faecal vomiting [Recovered/Resolved]
  - Hypokalaemia [Recovered/Resolved]
  - Vomiting [Recovered/Resolved]
  - Salivary hypersecretion [Recovered/Resolved]
  - Throat irritation [Unknown]
  - Oesophageal irritation [Recovered/Resolved]
  - Oropharyngeal pain [Unknown]
  - Oesophageal pain [Recovered/Resolved]
  - Abdominal pain upper [Recovered/Resolved]
  - Dyspepsia [Recovered/Resolved]
  - Epigastric discomfort [Recovered/Resolved]
  - Weight decreased [Unknown]
  - Colitis [Recovered/Resolved]
  - Malnutrition [Unknown]
  - Hypothyroidism [Unknown]
  - Oral herpes [Unknown]
  - COVID-19 [Unknown]
  - Rheumatoid arthritis [Unknown]
  - Vitamin D deficiency [Unknown]
  - Fibroadenoma of breast [Unknown]
  - Haematoma [Unknown]
  - Hyponatraemia [Unknown]
  - Fatigue [Unknown]
  - Alopecia [Unknown]
  - Adrenal insufficiency [Unknown]

NARRATIVE: CASE EVENT DATE: 20210501
